FAERS Safety Report 7821927-4 (Version None)
Quarter: 2011Q4

REPORT INFORMATION
  Report Type: 
  Country: None (occurrence: None)
  Receive Date: 20111018
  Receipt Date: 20110520
  Transmission Date: 20120403
  Serious: No
  Sender: FDA-Public Use
  Company Number: US-ASTRAZENECA-2011SE15152

PATIENT
  Age: 72 Year
  Sex: Female
  Weight: 55.8 kg

DRUGS (6)
  1. SEROQUEL [Suspect]
     Indication: DEPRESSION
     Route: 048
     Dates: start: 20110101, end: 20110301
  2. XANAX [Concomitant]
  3. NEXIUM [Suspect]
     Indication: DYSPEPSIA
     Route: 048
  4. LABETALOL HCL [Concomitant]
  5. NEURONTIN [Concomitant]
  6. SYMBICORT [Suspect]
     Indication: CHRONIC OBSTRUCTIVE PULMONARY DISEASE
     Dosage: TOTAL DAILY DOSAGE 320, TWO TIMES A DAY
     Route: 055

REACTIONS (4)
  - DECREASED APPETITE [None]
  - ASTHENIA [None]
  - HALLUCINATION, VISUAL [None]
  - WEIGHT DECREASED [None]
